FAERS Safety Report 15302154 (Version 2)
Quarter: 2018Q3

REPORT INFORMATION
  Report Type: Spontaneous
  Country: US (occurrence: US)
  Receive Date: 20180821
  Receipt Date: 20180920
  Transmission Date: 20181010
  Serious: Yes (Hospitalization, Other)
  Sender: FDA-Public Use
  Company Number: US-DSJP-DSU-2017-141178

PATIENT

DRUGS (1)
  1. BENICAR HCT [Suspect]
     Active Substance: HYDROCHLOROTHIAZIDE\OLMESARTAN MEDOXOMIL
     Indication: HYPERTENSION
     Dosage: 40?25 MG , QD
     Route: 048
     Dates: start: 20110214, end: 20150512

REACTIONS (3)
  - Acute kidney injury [Recovered/Resolved]
  - Sprue-like enteropathy [Recovering/Resolving]
  - Diverticulitis [Unknown]

NARRATIVE: CASE EVENT DATE: 20111014
